FAERS Safety Report 6269264-6 (Version None)
Quarter: 2009Q3

REPORT INFORMATION
  Report Type: 
  Country: None (occurrence: None)
  Receive Date: 20090715
  Receipt Date: 20090707
  Transmission Date: 20100115
  Serious: Yes (Life-Threatening, Hospitalization)
  Sender: FDA-Public Use
  Company Number: US-PFIZER INC-2008003937

PATIENT
  Sex: Male
  Weight: 103.9 kg

DRUGS (19)
  1. BLINDED *NO SUBJECT DRUG [Suspect]
     Dosage: 150 MG, 2X/DAY
     Route: 048
     Dates: start: 20051215, end: 20080210
  2. BLINDED *PLACEBO [Suspect]
     Dosage: 150 MG, 2X/DAY
     Route: 048
     Dates: start: 20051215, end: 20080210
  3. BLINDED MARAVIROC [Suspect]
     Dosage: 150 MG, 2X/DAY
     Route: 048
     Dates: start: 20051215, end: 20080210
  4. GLUCOPHAGE [Concomitant]
     Route: 048
     Dates: start: 20020508
  5. NIACIN [Concomitant]
     Route: 048
     Dates: start: 20051121
  6. TYLENOL PM [Concomitant]
     Route: 048
     Dates: start: 19990101
  7. POTASSIUM CHLORIDE [Concomitant]
     Route: 048
     Dates: start: 19990101
  8. TRICOR [Concomitant]
     Route: 048
     Dates: start: 20060315
  9. ZETIA [Concomitant]
     Route: 048
     Dates: start: 20060713
  10. ACYCLOVIR [Concomitant]
     Route: 048
     Dates: start: 20070719
  11. PREVACID [Concomitant]
     Route: 048
     Dates: start: 20070827
  12. VICODIN [Concomitant]
     Route: 048
     Dates: start: 20071014
  13. FLEXERIL [Concomitant]
     Route: 048
     Dates: start: 20071217
  14. PROMETHAZINE HCL [Concomitant]
     Route: 048
     Dates: start: 20070507
  15. NORVIR [Concomitant]
     Route: 048
     Dates: start: 20071102
  16. INVIRASE [Concomitant]
     Route: 048
     Dates: start: 20071102
  17. TRUVADA [Concomitant]
     Route: 048
     Dates: start: 20051216
  18. LONOX [Concomitant]
     Route: 048
     Dates: start: 19990325
  19. ALBUTEROL [Concomitant]
     Route: 055
     Dates: start: 20071016, end: 20080114

REACTIONS (6)
  - DYSPNOEA [None]
  - LUNG NEOPLASM [None]
  - LYMPHOMA [None]
  - NEPHROLITHIASIS [None]
  - RIB FRACTURE [None]
  - SEPSIS [None]
